FAERS Safety Report 7875181-8 (Version None)
Quarter: 2011Q4

REPORT INFORMATION
  Report Type: 
  Country: None (occurrence: None)
  Receive Date: 20111031
  Receipt Date: 20111021
  Transmission Date: 20120403
  Serious: No
  Sender: FDA-Public Use
  Company Number: US-BIOGENIDEC-2011BI040377

PATIENT
  Age: 46 Year
  Sex: Female

DRUGS (2)
  1. AVONEX [Suspect]
     Indication: MULTIPLE SCLEROSIS
     Route: 030
     Dates: start: 20110703
  2. AVONEX [Suspect]
     Route: 030
     Dates: start: 20081101, end: 20100701

REACTIONS (5)
  - NAUSEA [None]
  - VERTIGO [None]
  - EYE MOVEMENT DISORDER [None]
  - PRURITUS [None]
  - NYSTAGMUS [None]
